FAERS Safety Report 6290986-5 (Version None)
Quarter: 2009Q3

REPORT INFORMATION
  Report Type: 
  Country: None (occurrence: None)
  Receive Date: 20090730
  Receipt Date: 20090720
  Transmission Date: 20100115
  Serious: Yes (Hospitalization)
  Sender: FDA-Public Use
  Company Number: FR-PFIZER INC-2009242462

PATIENT
  Age: 53 Year

DRUGS (19)
  1. NEURONTIN [Suspect]
     Dosage: UNK
     Route: 048
     Dates: start: 20090427
  2. SORAFENIB TOSILATE [Suspect]
     Dosage: 200 MG, 1X/DAY
     Route: 048
     Dates: start: 20090519, end: 20090624
  3. NEXIUM [Suspect]
     Dosage: 20 MG, 1X/DAY
     Route: 048
     Dates: start: 20090420
  4. SOPHIDONE [Suspect]
     Dosage: 8 MG, 2X/DAY
     Route: 048
     Dates: start: 20090622
  5. ANAFRANIL [Suspect]
     Dosage: 75 MG, 2X/DAY
     Route: 048
     Dates: start: 20090427
  6. OXYNORM [Suspect]
     Dosage: UNK
     Route: 048
     Dates: start: 20090421
  7. PRAZEPAM [Suspect]
     Dosage: 10 MG, 1X/DAY
     Route: 048
  8. DAFALGAN [Suspect]
     Dosage: UNK
     Route: 048
     Dates: start: 20090622
  9. PRIMPERAN [Suspect]
     Dosage: UNK
     Route: 048
     Dates: start: 20090420
  10. MAGNE-B6 [Suspect]
     Dosage: 2 DF, 2X/DAY
     Route: 048
     Dates: start: 20090506
  11. LANSOYL [Suspect]
     Dosage: 1 DF, 3X/DAY
     Route: 048
     Dates: start: 20090418
  12. KETAMINE HCL [Suspect]
     Dosage: UNK
     Route: 042
     Dates: start: 20090623
  13. KETAMINE HCL [Suspect]
     Dosage: UNK
  14. KETAMINE HCL [Suspect]
     Dosage: UNK
  15. KETAMINE HCL [Suspect]
     Dosage: UNK
     Dates: end: 20090626
  16. MYCOSTATIN [Concomitant]
  17. MORPHINE [Concomitant]
     Dosage: UNK
  18. PARACETAMOL [Concomitant]
     Dosage: UNK
     Dates: start: 20090621, end: 20090622
  19. VITAMIN B1 AND B6 [Concomitant]

REACTIONS (3)
  - BLOOD ALKALINE PHOSPHATASE INCREASED [None]
  - GAMMA-GLUTAMYLTRANSFERASE INCREASED [None]
  - TRANSAMINASES INCREASED [None]
